FAERS Safety Report 18627972 (Version 1)
Quarter: 2020Q4

REPORT INFORMATION
  Report Type: Spontaneous
  Country: SK (occurrence: SK)
  Receive Date: 20201217
  Receipt Date: 20201217
  Transmission Date: 20210114
  Serious: Yes (Death)
  Sender: FDA-Public Use
  Company Number: SK-MYLANLABS-2020M1102075

PATIENT
  Age: 68 Year
  Sex: Female
  Weight: 80 kg

DRUGS (8)
  1. OMEPRAZOLE. [Suspect]
     Active Substance: OMEPRAZOLE
     Indication: SUPPORTIVE CARE
     Dosage: UNK
  2. TELMISARTAN. [Suspect]
     Active Substance: TELMISARTAN
     Indication: SUPPORTIVE CARE
     Dosage: UNK
  3. METHYLPREDNISOLONE. [Suspect]
     Active Substance: METHYLPREDNISOLONE
     Indication: MYELODYSPLASTIC SYNDROME
  4. METHYLPREDNISOLONE. [Suspect]
     Active Substance: METHYLPREDNISOLONE
     Indication: SUPPORTIVE CARE
     Dosage: UNK
  5. NOVALGIN (METAMIZOLE SODIUM) [Suspect]
     Active Substance: METAMIZOLE SODIUM
     Indication: SUPPORTIVE CARE
     Dosage: UNK
  6. ZINNAT                             /00454602/ [Suspect]
     Active Substance: CEFUROXIME SODIUM
     Indication: PRODUCT USED FOR UNKNOWN INDICATION
     Dosage: UNK
  7. PROBIOTICS                         /07325001/ [Suspect]
     Active Substance: BIFIDOBACTERIUM LONGUM\LACTOBACILLUS ACIDOPHILUS\LACTOBACILLUS RHAMNOSUS
     Indication: SUPPORTIVE CARE
     Dosage: UNK
  8. HYLAK /06228901/ [Suspect]
     Active Substance: LACTOBACILLUS HELVETICUS
     Indication: SUPPORTIVE CARE
     Dosage: UNK

REACTIONS (1)
  - Drug ineffective [Fatal]
